FAERS Safety Report 12730706 (Version 1)
Quarter: 2016Q3

REPORT INFORMATION
  Report Type: Spontaneous
  Country: US (occurrence: US)
  Receive Date: 20160910
  Receipt Date: 20160910
  Transmission Date: 20161109
  Serious: Yes (Hospitalization, Other)
  Sender: FDA-Public Use
  Company Number: US-ACCORD-043848

PATIENT
  Age: 76 Year
  Sex: Male

DRUGS (2)
  1. CLOPIDOGREL [Suspect]
     Active Substance: CLOPIDOGREL BISULFATE
     Indication: ANTIPLATELET THERAPY
  2. ACETYLSALICYLIC ACID [Concomitant]
     Active Substance: ASPIRIN
     Indication: ANTIPLATELET THERAPY

REACTIONS (5)
  - Sinus bradycardia [Recovered/Resolved]
  - Ventricular tachycardia [Recovered/Resolved]
  - Acute myocardial infarction [Recovering/Resolving]
  - Drug resistance [Unknown]
  - Vascular stent thrombosis [Recovered/Resolved]
